FAERS Safety Report 8830856 (Version 1)
Quarter: 2012Q4

REPORT INFORMATION
  Report Type: 
  Country: US (occurrence: US)
  Receive Date: 20121009
  Receipt Date: 20121009
  Transmission Date: 20130627
  Serious: Yes (Other)
  Sender: FDA-Public Use
  Company Number: PHEH2012US019464

PATIENT
  Sex: Female

DRUGS (15)
  1. COMTAN [Suspect]
     Indication: PARKINSON^S DISEASE
     Dosage: 200 mg, 2.5 (full in the morning and half pill three times) times daily
     Route: 048
     Dates: start: 1998
  2. ENALAPRIL MALEATE [Suspect]
     Indication: BLOOD PRESSURE
  3. OMEPRAZOLE [Suspect]
     Indication: GASTROOESOPHAGEAL REFLUX DISEASE
  4. SIMVASTATIN [Suspect]
     Indication: BLOOD CHOLESTEROL
  5. TRAZODONE [Suspect]
     Indication: DEPRESSION
  6. METOPROLOL SUCCINATE ER [Suspect]
     Indication: BLOOD PRESSURE
  7. LEVODOPA+CARBIDOPA [Suspect]
     Indication: PARKINSON^S DISEASE
     Dosage: Levodopa (100mg), Carbidopa (25mg) four times daily
     Route: 048
  8. LEVOTHYROXINE [Suspect]
     Indication: THYROID DISORDER
  9. DETROL [Suspect]
     Indication: BLADDER DISORDER
  10. COENZYME Q10 [Suspect]
     Indication: PARKINSON^S DISEASE
  11. ASPIRIN [Concomitant]
     Indication: CARDIAC DISORDER
  12. CITRUCEL [Concomitant]
  13. STOOL SOFTENER [Concomitant]
  14. MULTIVITAMIN [Concomitant]
  15. FISH OIL [Concomitant]

REACTIONS (11)
  - Restless legs syndrome [Unknown]
  - Freezing phenomenon [Unknown]
  - Oesophageal disorder [Unknown]
  - Drooling [Unknown]
  - Hallucination [Unknown]
  - Feeling abnormal [Unknown]
  - Disturbance in attention [Unknown]
  - Abdominal discomfort [Unknown]
  - Abnormal dreams [Unknown]
  - Tremor [Unknown]
  - Oesophageal hypomotility [Unknown]
